FAERS Safety Report 8692386 (Version 3)
Quarter: 2012Q4

REPORT INFORMATION
  Report Type: 
  Country: DE (occurrence: DE)
  Receive Date: 20120730
  Receipt Date: 20120924
  Transmission Date: 20130627
  Serious: Yes (Hospitalization)
  Sender: FDA-Public Use
  Company Number: DE-ELI_LILLY_AND_COMPANY-DE201207005500

PATIENT
  Age: 41 Year
  Sex: Female

DRUGS (5)
  1. HUMALOG LISPRO [Suspect]
     Indication: DIABETES MELLITUS
     Route: 058
  2. TREVILOR [Concomitant]
  3. BIPERIDEN-NEURAXPHARM [Concomitant]
  4. SEROQUEL [Concomitant]
  5. LISINOPRIL [Concomitant]

REACTIONS (2)
  - Hyperglycaemia [Recovered/Resolved]
  - Incorrect dose administered [Recovered/Resolved]
